FAERS Safety Report 21669294 (Version 1)
Quarter: 2022Q4

REPORT INFORMATION
  Report Type: Spontaneous
  Country: US (occurrence: None)
  Receive Date: 20221201
  Receipt Date: 20221201
  Transmission Date: 20230112
  Serious: Yes (Hospitalization)
  Sender: FDA-Public Use
  Company Number: None

PATIENT
  Sex: Male
  Weight: 72.5 kg

DRUGS (2)
  1. CARBOPLATIN [Suspect]
     Active Substance: CARBOPLATIN
     Dates: end: 20221031
  2. TAXOL [Suspect]
     Active Substance: PACLITAXEL
     Dates: end: 20221107

REACTIONS (7)
  - Influenza [None]
  - Dyspepsia [None]
  - Chest pain [None]
  - Hyperkalaemia [None]
  - Atrial flutter [None]
  - Positive airway pressure therapy [None]
  - Chronic obstructive pulmonary disease [None]

NARRATIVE: CASE EVENT DATE: 20221108
